FAERS Safety Report 17505269 (Version 1)
Quarter: 2020Q1

REPORT INFORMATION
  Report Type: Spontaneous
  Country: US (occurrence: US)
  Receive Date: 20200305
  Receipt Date: 20200305
  Transmission Date: 20200409
  Serious: Yes (Hospitalization)
  Sender: FDA-Public Use
  Company Number: US-BAYER-2016-103743

PATIENT
  Age: 48 Year
  Sex: Male
  Weight: 104.42 kg

DRUGS (5)
  1. XARELTO [Suspect]
     Active Substance: RIVAROXABAN
     Indication: THROMBOSIS PROPHYLAXIS
     Dosage: UNK
  2. BAYER LOW DOSE [Suspect]
     Active Substance: ASPIRIN
     Indication: PRODUCT USED FOR UNKNOWN INDICATION
     Dosage: 81 MG, QD
     Route: 048
  3. XARELTO [Suspect]
     Active Substance: RIVAROXABAN
     Indication: CEREBROVASCULAR ACCIDENT PROPHYLAXIS
     Dosage: 20 MG, QD
     Route: 048
     Dates: start: 201602, end: 20160227
  4. XARELTO [Suspect]
     Active Substance: RIVAROXABAN
     Indication: PAIN IN EXTREMITY
     Dosage: UNK
  5. XARELTO [Suspect]
     Active Substance: RIVAROXABAN
     Indication: ATRIAL FIBRILLATION
     Dosage: UNK

REACTIONS (2)
  - Diverticulum intestinal haemorrhagic [Recovered/Resolved]
  - Haematuria [Recovering/Resolving]

NARRATIVE: CASE EVENT DATE: 20160227
